FAERS Safety Report 4859232-0 (Version None)
Quarter: 2005Q4

REPORT INFORMATION
  Report Type: 
  Country: None (occurrence: None)
  Receive Date: 20051219
  Receipt Date: 20050201
  Transmission Date: 20060501
  Serious: Yes (Hospitalization, Other)
  Sender: FDA-Public Use
  Company Number: IS-AMGEN-UK111059

PATIENT
  Sex: Female

DRUGS (5)
  1. ARANESP [Suspect]
     Indication: RENAL FAILURE CHRONIC
     Route: 058
     Dates: start: 20040628, end: 20041012
  2. EPREX [Suspect]
     Route: 058
     Dates: start: 20040105, end: 20040628
  3. DAONIL [Concomitant]
     Route: 065
  4. AVANDIA [Concomitant]
     Route: 065
  5. ZOPICLONE [Concomitant]
     Route: 065

REACTIONS (4)
  - ANTI-ERYTHROPOIETIN ANTIBODY POSITIVE [None]
  - APLASIA PURE RED CELL [None]
  - DRUG INEFFECTIVE [None]
  - FATIGUE [None]
